FAERS Safety Report 21707653 (Version 1)
Quarter: 2022Q4

REPORT INFORMATION
  Report Type: Spontaneous
  Country: CN (occurrence: CN)
  Receive Date: 20221209
  Receipt Date: 20221209
  Transmission Date: 20230112
  Serious: Yes (Hospitalization)
  Sender: FDA-Public Use
  Company Number: CN-ELI_LILLY_AND_COMPANY-CN202211014470

PATIENT
  Sex: Female

DRUGS (2)
  1. HUMALOG MIX50/50 [Suspect]
     Active Substance: INSULIN LISPRO
     Indication: Diabetes mellitus
     Dosage: 20 U, EACH MORNING
     Route: 058
  2. HUMALOG MIX50/50 [Suspect]
     Active Substance: INSULIN LISPRO
     Dosage: 18 U, EACH EVENING
     Route: 058

REACTIONS (2)
  - Cataract [Recovered/Resolved]
  - Deafness [Recovering/Resolving]
